FAERS Safety Report 9209293 (Version 1)
Quarter: 2013Q2

REPORT INFORMATION
  Report Type: Spontaneous
  Country: JP (occurrence: JP)
  Receive Date: 20130404
  Receipt Date: 20130404
  Transmission Date: 20140414
  Serious: Yes (Other)
  Sender: FDA-Public Use
  Company Number: JP-ASTELLAS-2013JP004503

PATIENT
  Age: 10 Year
  Sex: Female

DRUGS (5)
  1. TACROLIMUS OINTMENT [Suspect]
     Indication: PARAPSORIASIS
     Dosage: UNK
     Route: 061
  2. TACALCITOL [Concomitant]
     Indication: PARAPSORIASIS
     Dosage: UNK
     Route: 061
  3. TACALCITOL [Concomitant]
     Dosage: UNK
     Route: 061
  4. CORTICOSTEROID NOS [Concomitant]
     Indication: PARAPSORIASIS
     Dosage: UNK
     Route: 061
  5. CORTICOSTEROID NOS [Concomitant]
     Dosage: UNK
     Route: 061

REACTIONS (2)
  - Drug ineffective for unapproved indication [Unknown]
  - Parapsoriasis [Unknown]
